FAERS Safety Report 10038102 (Version 2)
Quarter: 2014Q2

REPORT INFORMATION
  Report Type: Spontaneous
  Country: US (occurrence: US)
  Receive Date: 20140326
  Receipt Date: 20140410
  Transmission Date: 20141212
  Serious: No
  Sender: FDA-Public Use
  Company Number: US-009507513-1403USA011793

PATIENT
  Age: 49 Year
  Sex: Female

DRUGS (2)
  1. THERAPY UNSPECIFIED [Suspect]
     Dosage: UNK
  2. SIMVASTATIN [Suspect]

REACTIONS (1)
  - Dyspepsia [Unknown]
